FAERS Safety Report 8495228-8 (Version None)
Quarter: 2012Q2

REPORT INFORMATION
  Report Type: 
  Country: None (occurrence: None)
  Receive Date: 20120405
  Receipt Date: 20100401
  Transmission Date: 20120825
  Serious: Yes (Hospitalization)
  Sender: FDA-Public Use
  Company Number: PHHY2010US20723

PATIENT
  Age: 73 Year
  Sex: Female

DRUGS (1)
  1. RECLAST [Suspect]
     Indication: OSTEOPOROSIS
     Dosage: INFUSION
     Dates: start: 20090125

REACTIONS (4)
  - WEIGHT DECREASED [None]
  - MALAISE [None]
  - RENAL FAILURE ACUTE [None]
  - INFLUENZA LIKE ILLNESS [None]
